FAERS Safety Report 14036033 (Version 1)
Quarter: 2017Q4

REPORT INFORMATION
  Report Type: Spontaneous
  Country: US (occurrence: US)
  Receive Date: 20171003
  Receipt Date: 20171003
  Transmission Date: 20180321
  Serious: No
  Sender: FDA-Public Use
  Company Number: US-ROCHE-1915812

PATIENT
  Age: 60 Year
  Sex: Female

DRUGS (12)
  1. MAXZIDE [Concomitant]
     Active Substance: HYDROCHLOROTHIAZIDE\TRIAMTERENE
  2. LEVEMIR [Concomitant]
     Active Substance: INSULIN DETEMIR
  3. MAGNESIUM OXIDE. [Concomitant]
     Active Substance: MAGNESIUM OXIDE
  4. OXYCODONE HYDROCHLORIDE. [Concomitant]
     Active Substance: OXYCODONE HYDROCHLORIDE
  5. OXYCONTIN [Concomitant]
     Active Substance: OXYCODONE HYDROCHLORIDE
  6. PRILOSEC [Concomitant]
     Active Substance: OMEPRAZOLE MAGNESIUM
  7. SENNA [Concomitant]
     Active Substance: SENNA LEAF\SENNOSIDES\SENNOSIDES A AND B
  8. ALTACE [Concomitant]
     Active Substance: RAMIPRIL
  9. CARDIZEM [Concomitant]
     Active Substance: DILTIAZEM HYDROCHLORIDE
  10. K-DUR [Concomitant]
     Active Substance: POTASSIUM CHLORIDE
  11. ZELBORAF [Suspect]
     Active Substance: VEMURAFENIB
     Indication: CHOLANGIOCARCINOMA
     Dosage: TAKE 4 TABLETS BY MOUTH TWICE A DAY
     Route: 048
  12. NOVOLOG [Concomitant]
     Active Substance: INSULIN ASPART

REACTIONS (1)
  - Pain [Unknown]
